FAERS Safety Report 5886295-6 (Version None)
Quarter: 2008Q3

REPORT INFORMATION
  Report Type: 
  Country: None (occurrence: None)
  Receive Date: 20080917
  Receipt Date: 20080911
  Transmission Date: 20090109
  Serious: Yes (Hospitalization)
  Sender: FDA-Public Use
  Company Number: A0730537A

PATIENT
  Sex: Female

DRUGS (13)
  1. AVANDIA [Suspect]
     Dosage: 8MG PER DAY
     Route: 048
     Dates: start: 19990101, end: 20080816
  2. LANTUS [Suspect]
     Dosage: 15UNIT PER DAY
     Route: 058
     Dates: start: 20040101
  3. GLUCOPHAGE [Concomitant]
  4. AMARYL [Concomitant]
  5. INSULIN [Concomitant]
  6. LIPITOR [Concomitant]
  7. HYDROCHLOROTHIAZIDE [Concomitant]
  8. ATENOLOL [Concomitant]
  9. LISINOPRIL [Concomitant]
  10. PRILOSEC [Concomitant]
  11. MISOPROSTOL [Concomitant]
  12. TRAZODONE HCL [Concomitant]
  13. VALIUM [Concomitant]

REACTIONS (8)
  - DRUG INTERACTION [None]
  - DYSPNOEA [None]
  - FLUID RETENTION [None]
  - HYPOGLYCAEMIA [None]
  - JOINT SWELLING [None]
  - PAIN IN EXTREMITY [None]
  - PULMONARY OEDEMA [None]
  - WEIGHT INCREASED [None]
